FAERS Safety Report 24372575 (Version 1)
Quarter: 2024Q3

REPORT INFORMATION
  Report Type: Spontaneous
  Country: US (occurrence: US)
  Receive Date: 20240927
  Receipt Date: 20240927
  Transmission Date: 20241017
  Serious: Yes (Hospitalization, Other)
  Sender: REGENERON
  Company Number: US-REGENERON PHARMACEUTICALS, INC.-2024-128507

PATIENT
  Age: 72 Year
  Sex: Male

DRUGS (1)
  1. CEMIPLIMAB [Suspect]
     Active Substance: CEMIPLIMAB
     Indication: Metastatic squamous cell carcinoma

REACTIONS (8)
  - Dysphagia [Unknown]
  - Ventricular extrasystoles [Unknown]
  - Overlap syndrome [Unknown]
  - Coronary artery disease [Unknown]
  - Loss of consciousness [Unknown]
  - Muscular weakness [Unknown]
  - Myositis [Unknown]
  - Dyspnoea [Unknown]
